FAERS Safety Report 6132721-7 (Version None)
Quarter: 2009Q1

REPORT INFORMATION
  Report Type: 
  Country: None (occurrence: None)
  Receive Date: 20090325
  Receipt Date: 20090325
  Transmission Date: 20090719
  Serious: Yes (Disabling)
  Sender: FDA-Public Use
  Company Number: None

PATIENT
  Age: 7 Month
  Sex: Male

DRUGS (1)
  1. MOTRIN [Suspect]
     Dosage: USED ONCE
     Dates: start: 20090318

REACTIONS (5)
  - EYE DISORDER [None]
  - EYE SWELLING [None]
  - IRRITABILITY [None]
  - RASH [None]
  - SOMNOLENCE [None]
